FAERS Safety Report 6938298-8 (Version None)
Quarter: 2010Q3

REPORT INFORMATION
  Report Type: 
  Country: None (occurrence: None)
  Receive Date: 20100824
  Receipt Date: 20100812
  Transmission Date: 20110219
  Serious: Yes (Hospitalization, Other)
  Sender: FDA-Public Use
  Company Number: US-PFIZER INC-2010073502

PATIENT
  Sex: Female

DRUGS (31)
  1. CHANTIX [Suspect]
     Indication: SMOKING CESSATION THERAPY
     Dosage: 0.5MG FOR 11 DAYS AND 1MG FOR 14 DAYS OR MISCELLANEOUS
     Dates: start: 20070501, end: 20071029
  2. VICODIN [Concomitant]
     Indication: CONTUSION
     Dosage: UNK
     Dates: start: 19990101
  3. VICODIN [Concomitant]
     Indication: BACK PAIN
  4. VICODIN [Concomitant]
     Indication: SCIATICA
  5. VICODIN [Concomitant]
     Indication: COCCYDYNIA
  6. VICODIN [Concomitant]
     Indication: PEAU D'ORANGE
  7. VICODIN [Concomitant]
     Indication: MUSCULOSKELETAL CHEST PAIN
  8. ATIVAN [Concomitant]
     Indication: SLEEP DISORDER
     Dosage: UNK
     Dates: start: 20000501
  9. ATIVAN [Concomitant]
     Indication: DEPRESSION
  10. ATIVAN [Concomitant]
     Indication: ANXIETY
  11. ATIVAN [Concomitant]
     Indication: AGITATION
  12. ATIVAN [Concomitant]
     Indication: PANIC ATTACK
  13. MOTRIN [Concomitant]
     Indication: TENDONITIS
     Dosage: UNK
     Dates: start: 20010201
  14. MOTRIN [Concomitant]
     Indication: HEADACHE
  15. MOTRIN [Concomitant]
     Indication: BACK PAIN
  16. MOTRIN [Concomitant]
     Indication: PAIN
  17. MOTRIN [Concomitant]
     Indication: INFLAMMATION
  18. NAPROXEN [Concomitant]
     Indication: TENDONITIS
     Dosage: UNK
     Dates: start: 20031001, end: 20080301
  19. NAPROXEN [Concomitant]
     Indication: CONTUSION
  20. NAPROXEN [Concomitant]
     Indication: COCCYDYNIA
  21. NAPROXEN [Concomitant]
     Indication: PAIN
  22. NAPROXEN [Concomitant]
     Indication: INFLAMMATION
  23. NICOTINE [Concomitant]
     Indication: SMOKING CESSATION THERAPY
     Dosage: UNK
     Dates: start: 20040501, end: 20100301
  24. CYCLOBENZAPRINE [Concomitant]
     Indication: BACK PAIN
     Dosage: UNK
     Dates: start: 20041201, end: 20090301
  25. BUPROPION [Concomitant]
     Indication: DEPRESSION
     Dosage: UNK
     Dates: start: 20060301, end: 20080201
  26. BUPROPION [Concomitant]
     Indication: SMOKING CESSATION THERAPY
  27. BUPROPION [Concomitant]
     Indication: ANXIETY
  28. DESYREL [Concomitant]
     Indication: INSOMNIA
     Dosage: UNK
     Dates: start: 20070301
  29. DESYREL [Concomitant]
     Indication: DEPRESSION
  30. CEPHALEXIN [Concomitant]
     Indication: CELLULITIS
     Dosage: UNK
     Dates: start: 20021201, end: 20071201
  31. SULFAMETHOXAZOLE AND TRIMETHOPRIM [Concomitant]
     Indication: CELLULITIS
     Dosage: UNK
     Dates: start: 20031001, end: 20071201

REACTIONS (8)
  - AGITATION [None]
  - ANXIETY [None]
  - BIPOLAR DISORDER [None]
  - IRRITABILITY [None]
  - MAJOR DEPRESSION [None]
  - PANIC ATTACK [None]
  - PERSONALITY DISORDER [None]
  - SUICIDAL IDEATION [None]
